FAERS Safety Report 5747984-7 (Version None)
Quarter: 2008Q2

REPORT INFORMATION
  Report Type: 
  Country: None (occurrence: None)
  Receive Date: 20080523
  Receipt Date: 20080519
  Transmission Date: 20081010
  Serious: Yes (Life-Threatening, Other)
  Sender: FDA-Public Use
  Company Number: US-ALLERGAN-0805995US

PATIENT
  Age: 74 Year
  Sex: Female

DRUGS (2)
  1. BOTOX [Suspect]
     Indication: TREMOR
     Dosage: 300 UNITS, SINGLE
     Route: 030
     Dates: start: 20080414, end: 20080414
  2. BOTOX [Suspect]
     Indication: DYSTONIA

REACTIONS (9)
  - CHOKING [None]
  - DIZZINESS [None]
  - DYSPHAGIA [None]
  - DYSSTASIA [None]
  - FALL [None]
  - HEADACHE [None]
  - LETHARGY [None]
  - OVERDOSE [None]
  - TREMOR [None]
